FAERS Safety Report 8426156-1 (Version None)
Quarter: 2012Q2

REPORT INFORMATION
  Report Type: 
  Country: None (occurrence: None)
  Receive Date: 20120611
  Receipt Date: 20120531
  Transmission Date: 20120825
  Serious: Yes (Other)
  Sender: FDA-Public Use
  Company Number: FR-SANOFI-AVENTIS-2012SA039040

PATIENT
  Age: 74 Year
  Sex: Female

DRUGS (1)
  1. RILUTEK [Suspect]
     Route: 048
     Dates: start: 20101201, end: 20110705

REACTIONS (1)
  - AGRANULOCYTOSIS [None]
